FAERS Safety Report 8223802-2 (Version None)
Quarter: 2012Q1

REPORT INFORMATION
  Report Type: 
  Country: None (occurrence: None)
  Receive Date: 20120321
  Receipt Date: 20120321
  Transmission Date: 20120608
  Serious: Yes (Disabling)
  Sender: FDA-Public Use
  Company Number: None

PATIENT
  Age: 71 Year
  Sex: Female
  Weight: 68.946 kg

DRUGS (1)
  1. LIPITOR [Suspect]
     Indication: BLOOD CHOLESTEROL NORMAL
     Route: 048
     Dates: start: 20111128, end: 20120125

REACTIONS (6)
  - LIVER FUNCTION TEST ABNORMAL [None]
  - URTICARIA [None]
  - HEPATOMEGALY [None]
  - PRURITUS GENERALISED [None]
  - FATIGUE [None]
  - LIVER DISORDER [None]
